FAERS Safety Report 9181390 (Version 1)
Quarter: 2013Q1

REPORT INFORMATION
  Report Type: Spontaneous
  Country: GB (occurrence: None)
  Receive Date: 20130320
  Receipt Date: 20130320
  Transmission Date: 20140127
  Serious: Yes (Death)
  Sender: FDA-Public Use
  Company Number: 2013-04805

PATIENT
  Age: 40 Year
  Sex: Female

DRUGS (3)
  1. TRAMADOL HYDROCHLORIDE [Suspect]
  2. VENLAFAXINE HYDROCHLORIDE [Suspect]
  3. AMITRIPTYLINE (AMITRIPTYLINE) [Suspect]

REACTIONS (1)
  - Drug interaction [None]
